FAERS Safety Report 7437483-9 (Version None)
Quarter: 2011Q2

REPORT INFORMATION
  Report Type: 
  Country: None (occurrence: None)
  Receive Date: 20110426
  Receipt Date: 20110414
  Transmission Date: 20111010
  Serious: Yes (Other)
  Sender: FDA-Public Use
  Company Number: PHHY2011TH31807

PATIENT

DRUGS (2)
  1. SIMVASTATIN [Suspect]
     Dosage: 10 MG/DAY
     Dates: start: 20080101
  2. SIMVASTATIN [Suspect]
     Indication: HYPERCHOLESTEROLAEMIA
     Dosage: 20 MG/DAY
     Dates: start: 20070101

REACTIONS (5)
  - MUSCLE FATIGUE [None]
  - SPEECH DISORDER [None]
  - MYASTHENIA GRAVIS [None]
  - DYSPHAGIA [None]
  - EXTRAOCULAR MUSCLE PARESIS [None]
